FAERS Safety Report 22212655 (Version 1)
Quarter: 2023Q2

REPORT INFORMATION
  Report Type: Spontaneous
  Country: US (occurrence: None)
  Receive Date: 20230414
  Receipt Date: 20230414
  Transmission Date: 20230721
  Serious: Yes (Other)
  Sender: FDA-Public Use
  Company Number: None

PATIENT
  Age: 61 Year
  Sex: Male
  Weight: 105.75 kg

DRUGS (2)
  1. WEGOVY [Suspect]
     Active Substance: SEMAGLUTIDE
     Indication: Obesity
     Dosage: OTHER FREQUENCY : WEEKLY;?
     Route: 058
     Dates: start: 20230404, end: 20230411
  2. WEGOVY [Concomitant]
     Active Substance: SEMAGLUTIDE
     Dates: start: 20230404, end: 20230413

REACTIONS (3)
  - Extrasystoles [None]
  - Extrasystoles [None]
  - Ventricular extrasystoles [None]

NARRATIVE: CASE EVENT DATE: 20230413
